FAERS Safety Report 16101181 (Version 1)
Quarter: 2019Q1

REPORT INFORMATION
  Report Type: Spontaneous
  Country: JP (occurrence: JP)
  Receive Date: 20190321
  Receipt Date: 20190321
  Transmission Date: 20190418
  Serious: Yes (Other)
  Sender: FDA-Public Use
  Company Number: JP-PFIZER INC-2019116947

PATIENT

DRUGS (3)
  1. OXALIPLATIN. [Suspect]
     Active Substance: OXALIPLATIN
     Dosage: UNK
  2. 5 FU [Suspect]
     Active Substance: FLUOROURACIL
     Dosage: UNK
  3. ISOVORIN [Suspect]
     Active Substance: LEUCOVORIN CALCIUM

REACTIONS (2)
  - Bone marrow failure [Unknown]
  - Neutrophil count decreased [Unknown]
